FAERS Safety Report 10581358 (Version 1)
Quarter: 2014Q4

REPORT INFORMATION
  Report Type: Spontaneous
  Country: AT (occurrence: AT)
  Receive Date: 20141113
  Receipt Date: 20141113
  Transmission Date: 20150529
  Serious: Yes (Death, Other)
  Sender: FDA-Public Use
  Company Number: AT-BAYER-2014-166192

PATIENT
  Age: 68 Year
  Sex: Male

DRUGS (2)
  1. STIVARGA [Suspect]
     Active Substance: REGORAFENIB
     Indication: RECTAL CANCER
     Dosage: UNK
     Dates: start: 20140225
  2. STIVARGA [Suspect]
     Active Substance: REGORAFENIB
     Indication: RECTAL CANCER
     Dosage: 120 MG, QD
     Route: 048
     Dates: end: 20140722

REACTIONS (8)
  - Dysphonia [None]
  - Fatigue [None]
  - Rectal cancer [None]
  - Rectal cancer [Fatal]
  - Aspartate aminotransferase increased [Recovering/Resolving]
  - Blood bilirubin increased [None]
  - Hypophosphataemia [None]
  - Jaundice hepatocellular [None]

NARRATIVE: CASE EVENT DATE: 201406
